FAERS Safety Report 20157052 (Version 3)
Quarter: 2022Q2

REPORT INFORMATION
  Report Type: Report from Study
  Country: CA (occurrence: CA)
  Receive Date: 20211207
  Receipt Date: 20220531
  Transmission Date: 20220721
  Serious: Yes (Other)
  Sender: FDA-Public Use
  Company Number: CA-TAKEDA-2021TUS076801

PATIENT
  Age: 73 Year
  Sex: Male

DRUGS (6)
  1. ICATIBANT [Suspect]
     Active Substance: ICATIBANT ACETATE
     Indication: Monoclonal gammopathy
     Dosage: UNK
     Route: 065
     Dates: start: 20170401
  2. ICATIBANT [Suspect]
     Active Substance: ICATIBANT ACETATE
     Indication: Monoclonal gammopathy
     Dosage: UNK
     Route: 065
     Dates: start: 20170401
  3. ICATIBANT [Suspect]
     Active Substance: ICATIBANT ACETATE
     Indication: Angioedema
     Dosage: UNK
     Route: 058
     Dates: start: 20170401
  4. ICATIBANT [Suspect]
     Active Substance: ICATIBANT ACETATE
     Indication: Angioedema
     Dosage: UNK
     Route: 058
     Dates: start: 20170401
  5. ICATIBANT [Suspect]
     Active Substance: ICATIBANT ACETATE
     Dosage: 30 MILLIGRAM
     Route: 058
     Dates: start: 20170401
  6. ICATIBANT [Suspect]
     Active Substance: ICATIBANT ACETATE
     Dosage: 30 MILLIGRAM
     Route: 058
     Dates: start: 20170401

REACTIONS (4)
  - Angina pectoris [Not Recovered/Not Resolved]
  - Atrioventricular block [Not Recovered/Not Resolved]
  - Leukaemia [Not Recovered/Not Resolved]
  - Off label use [Unknown]

NARRATIVE: CASE EVENT DATE: 20170401
